FAERS Safety Report 10236250 (Version 1)
Quarter: 2014Q1

REPORT INFORMATION
  Report Type: Spontaneous
  Country: US (occurrence: None)
  Receive Date: 20140306
  Receipt Date: 20140306
  Transmission Date: 20141002
  Serious: Yes (Hospitalization)
  Sender: FDA-Public Use
  Company Number: 163-21880-13102951

PATIENT
  Age: 84 Year
  Sex: Female

DRUGS (7)
  1. REVLIMID(LENALIDOMIDE)(25 MILLIGRAM, CAPSULES) [Suspect]
     Indication: PLASMA CELL MYELOMA
     Dosage: 25 MG, 21 IN 21 D, PO
     Route: 048
     Dates: start: 20130920
  2. PREDNISONE(PREDNISONE)(UKNOWN) [Concomitant]
  3. OMEPRAZOLE(OMEPRAZOLE)(UNKNOWN) [Concomitant]
  4. DEXAMETHASONE(DEXAMETHASONE) [Concomitant]
  5. CYMBALTA [Concomitant]
  6. MUCINEX D(UKNOWN) [Concomitant]
  7. ONDASETRON HCL (ONDANSETRON HYDROCHLORIDE)(UKNOWN) [Concomitant]

REACTIONS (7)
  - Pneumonia [None]
  - Hypotension [None]
  - Renal failure [None]
  - Rash [None]
  - Diarrhoea [None]
  - Nausea [None]
  - Decreased appetite [None]
